FAERS Safety Report 4738522-6 (Version None)
Quarter: 2005Q3

REPORT INFORMATION
  Report Type: 
  Country: None (occurrence: None)
  Receive Date: 20050803
  Receipt Date: 20050727
  Transmission Date: 20060218
  Serious: Yes (Other)
  Sender: FDA-Public Use
  Company Number: AU_050708728

PATIENT
  Age: 10 Year
  Sex: Female
  Weight: 42 kg

DRUGS (6)
  1. STRATTERA [Suspect]
     Indication: ABNORMAL BEHAVIOUR
     Dosage: 40 MG DAY
     Dates: start: 20050501
  2. VALPROIC ACID [Concomitant]
  3. CARBAMAZEPINE [Concomitant]
  4. RISPERIDONE [Concomitant]
  5. FLUOXETINE (FLUOXETINE 00724401/) [Concomitant]
  6. MELATONIN [Concomitant]

REACTIONS (3)
  - CONDITION AGGRAVATED [None]
  - PARTIAL SEIZURES [None]
  - PETIT MAL EPILEPSY [None]
